FAERS Safety Report 7241568-X (Version None)
Quarter: 2011Q1

REPORT INFORMATION
  Report Type: 
  Country: None (occurrence: None)
  Receive Date: 20110124
  Receipt Date: 20110111
  Transmission Date: 20110831
  Serious: Yes (Hospitalization, Disabling)
  Sender: FDA-Public Use
  Company Number: US-MERCK-1008USA02788

PATIENT
  Age: 61 Year
  Sex: Female
  Weight: 88 kg

DRUGS (6)
  1. FOSAMAX [Suspect]
     Indication: OSTEOPOROSIS
     Route: 048
     Dates: start: 20010306, end: 20020116
  2. SYNTHROID [Concomitant]
     Indication: HYPOTHYROIDISM
     Route: 065
  3. FOSAMAX [Suspect]
     Route: 048
     Dates: start: 20020501, end: 20080408
  4. VITAMINS (UNSPECIFIED) [Concomitant]
     Route: 065
     Dates: start: 19800101
  5. ACTONEL [Suspect]
     Indication: OSTEOPOROSIS
     Route: 048
     Dates: start: 20020116, end: 20020501
  6. ALENDRONATE SODIUM [Suspect]
     Indication: OSTEOPOROSIS
     Route: 048
     Dates: start: 20080408, end: 20080808

REACTIONS (18)
  - HERPES ZOSTER [None]
  - LUMBAR RADICULOPATHY [None]
  - TYPE 2 DIABETES MELLITUS [None]
  - SCIATICA [None]
  - STRESS FRACTURE [None]
  - FIBROCYSTIC BREAST DISEASE [None]
  - INTERVERTEBRAL DISC PROTRUSION [None]
  - OTITIS MEDIA ACUTE [None]
  - SINUSITIS [None]
  - PLANTAR FASCIITIS [None]
  - OSTEOPOROSIS [None]
  - HYPERTENSION [None]
  - SACROILIITIS [None]
  - LOW TURNOVER OSTEOPATHY [None]
  - CERUMEN IMPACTION [None]
  - FEMUR FRACTURE [None]
  - MORTON'S NEUROMA [None]
  - INTERVERTEBRAL DISC DEGENERATION [None]
